FAERS Safety Report 15226504 (Version 1)
Quarter: 2018Q3

REPORT INFORMATION
  Report Type: Spontaneous
  Country: US (occurrence: US)
  Receive Date: 20180801
  Receipt Date: 20180801
  Transmission Date: 20181010
  Serious: No
  Sender: FDA-Public Use
  Company Number: US-SA-2018SA199140

PATIENT
  Sex: Female

DRUGS (2)
  1. ARAVA [Suspect]
     Active Substance: LEFLUNOMIDE
  2. METHOTREXATE. [Suspect]
     Active Substance: METHOTREXATE
     Dosage: UNK

REACTIONS (1)
  - Rash [Unknown]
